FAERS Safety Report 23883163 (Version 4)
Quarter: 2025Q2

REPORT INFORMATION
  Report Type: Report from Study
  Country: GB (occurrence: GB)
  Receive Date: 20240522
  Receipt Date: 20250611
  Transmission Date: 20250716
  Serious: Yes (Other)
  Sender: SANDOZ
  Company Number: GB-SANDOZ-SDZ2024GB049863

PATIENT
  Sex: Male

DRUGS (3)
  1. OMNITROPE [Suspect]
     Active Substance: SOMATROPIN
     Dosage: 0.70 MG, QD (EVENING)
     Route: 058
  2. OMNITROPE [Suspect]
     Active Substance: SOMATROPIN
     Indication: Hypopituitarism
     Route: 058
  3. CORTISONE [Concomitant]
     Active Substance: CORTISONE
     Indication: Product used for unknown indication
     Route: 065

REACTIONS (9)
  - Neoplasm malignant [Unknown]
  - Growth failure [Unknown]
  - Blindness [Unknown]
  - Therapy cessation [Unknown]
  - Malaise [Unknown]
  - Gait inability [Unknown]
  - Speech disorder [Unknown]
  - Injection site bruising [Unknown]
  - Product dose omission issue [Unknown]
